FAERS Safety Report 26040156 (Version 2)
Quarter: 2025Q4

REPORT INFORMATION
  Report Type: Spontaneous
  Country: US (occurrence: US)
  Receive Date: 20251113
  Receipt Date: 20251117
  Transmission Date: 20260119
  Serious: No
  Sender: ROCHE
  Company Number: US-ROCHE-10000428297

PATIENT
  Age: 52 Year
  Sex: Female
  Weight: 55.33 kg

DRUGS (3)
  1. PHESGO [Suspect]
     Active Substance: HYALURONIDASE-ZZXF\PERTUZUMAB\TRASTUZUMAB
     Indication: HER2 positive breast cancer
     Route: 058
     Dates: start: 20240328
  2. NALTREXONE [Concomitant]
     Active Substance: NALTREXONE
     Indication: Inflammation
     Route: 048
  3. MEBENDAZOLE [Concomitant]
     Active Substance: MEBENDAZOLE
     Indication: HER2 positive breast cancer
     Route: 048

REACTIONS (1)
  - Glomerular filtration rate decreased [Not Recovered/Not Resolved]

NARRATIVE: CASE EVENT DATE: 20250521
